FAERS Safety Report 7922410-8 (Version None)
Quarter: 2011Q4

REPORT INFORMATION
  Report Type: 
  Country: None (occurrence: None)
  Receive Date: 20111117
  Receipt Date: 20110120
  Transmission Date: 20120403
  Serious: No
  Sender: FDA-Public Use
  Company Number: US-AMGEN-USASP2011003569

PATIENT
  Sex: Female

DRUGS (1)
  1. ENBREL [Suspect]
     Indication: ANKYLOSING SPONDYLITIS
     Dates: start: 20101216

REACTIONS (4)
  - FATIGUE [None]
  - VULVOVAGINAL DRYNESS [None]
  - NAUSEA [None]
  - HOT FLUSH [None]
